FAERS Safety Report 21371775 (Version 1)
Quarter: 2022Q3

REPORT INFORMATION
  Report Type: Spontaneous
  Country: CN (occurrence: CN)
  Receive Date: 20220923
  Receipt Date: 20220923
  Transmission Date: 20221026
  Serious: Yes (Hospitalization, Other)
  Sender: FDA-Public Use
  Company Number: CN-BAYER-2022A131268

PATIENT
  Age: 86 Year
  Sex: Male
  Weight: 80 kg

DRUGS (1)
  1. XARELTO [Suspect]
     Active Substance: RIVAROXABAN
     Indication: Anticoagulant therapy
     Dosage: 10 MG, QD
     Route: 048
     Dates: start: 20200101, end: 20220831

REACTIONS (6)
  - Haemoptysis [Recovered/Resolved]
  - Pneumonia [Unknown]
  - Pulmonary arterial hypertension [Unknown]
  - Prescribed underdose [Unknown]
  - Underdose [Unknown]
  - Productive cough [Unknown]

NARRATIVE: CASE EVENT DATE: 20200101
